FAERS Safety Report 21812973 (Version 1)
Quarter: 2023Q1

REPORT INFORMATION
  Report Type: Report from Study
  Country: CO (occurrence: CO)
  Receive Date: 20230103
  Receipt Date: 20230103
  Transmission Date: 20230417
  Serious: Yes (Hospitalization, Other)
  Sender: FDA-Public Use
  Company Number: CO-ALLERGAN-2223265US

PATIENT
  Sex: Male
  Weight: 48 kg

DRUGS (3)
  1. DEXAMETHASONE [Suspect]
     Active Substance: DEXAMETHASONE
     Indication: Diabetic retinal oedema
     Dosage: 0.7 MG, SINGLE
     Route: 031
     Dates: start: 20220308, end: 20220308
  2. DEXAMETHASONE [Suspect]
     Active Substance: DEXAMETHASONE
     Indication: Diabetic retinal oedema
     Dosage: 0.7 MG, SINGLE
     Route: 031
     Dates: start: 20211116, end: 20211116
  3. INSULIN NOS [Concomitant]
     Active Substance: INSULIN NOS
     Indication: Diabetes mellitus
     Dosage: 1 DF, TID
     Route: 058
     Dates: start: 201802

REACTIONS (13)
  - Syncope [Recovering/Resolving]
  - Loss of consciousness [Recovering/Resolving]
  - Pneumonia [Recovering/Resolving]
  - Toe amputation [Unknown]
  - Thermal burn [Recovering/Resolving]
  - Hypoglycaemia [Recovering/Resolving]
  - Critical illness [Not Recovered/Not Resolved]
  - Cough [Recovering/Resolving]
  - Fatigue [Recovering/Resolving]
  - Malaise [Recovering/Resolving]
  - Limb discomfort [Recovering/Resolving]
  - Wound infection [Unknown]
  - Wound [Unknown]

NARRATIVE: CASE EVENT DATE: 20220101
